FAERS Safety Report 7270402-7 (Version None)
Quarter: 2010Q4

REPORT INFORMATION
  Report Type: 
  Country: None (occurrence: None)
  Receive Date: 20101130
  Receipt Date: 20100922
  Transmission Date: 20110411
  Serious: Yes (Other)
  Sender: FDA-Public Use
  Company Number: US201009007285

PATIENT
  Age: 62 Year
  Sex: Female

DRUGS (6)
  1. BYETTA [Suspect]
     Indication: PRODUCT USED FOR UNKNOWN INDICATION
     Dosage: 10 UG
     Dates: start: 20060901, end: 20100920
  2. HUMALOG [Concomitant]
  3. MOBIC [Concomitant]
  4. LISINOPRIL [Concomitant]
  5. POTASSIUM (POTASIUM) [Concomitant]
  6. METFORMIN HCL [Concomitant]

REACTIONS (3)
  - BLOOD CREATININE INCREASED [None]
  - NAUSEA [None]
  - OFF LABEL USE [None]
